FAERS Safety Report 11797005 (Version 2)
Quarter: 2019Q4

REPORT INFORMATION
  Report Type: Spontaneous
  Country: US (occurrence: US)
  Receive Date: 20151203
  Receipt Date: 20191019
  Transmission Date: 20200122
  Serious: Yes (Hospitalization, Other)
  Sender: FDA-Public Use
  Company Number: US-TEVA-615111USA

PATIENT
  Age: 35 Year
  Sex: Female

DRUGS (1)
  1. COPAXONE [Suspect]
     Active Substance: GLATIRAMER ACETATE
     Indication: MULTIPLE SCLEROSIS
     Dosage: UNKNOWN FORM STRENGTH

REACTIONS (7)
  - Multiple sclerosis [Unknown]
  - Gait disturbance [Unknown]
  - Muscular weakness [Unknown]
  - Maternal exposure during pregnancy [Unknown]
  - Hypoaesthesia [Unknown]
  - Balance disorder [Unknown]
  - Drug ineffective [Unknown]
